FAERS Safety Report 8538535-2 (Version None)
Quarter: 2012Q3

REPORT INFORMATION
  Report Type: 
  Country: None (occurrence: None)
  Receive Date: 20120718
  Receipt Date: 20120718
  Transmission Date: 20120928
  Serious: No
  Sender: FDA-Public Use
  Company Number: None

PATIENT
  Sex: Female
  Weight: 77.1115 kg

DRUGS (1)
  1. CIPROFLOXACIN [Suspect]
     Indication: GASTROENTERITIS VIRAL
     Dosage: ONE TABLET TWICE A DAY BY MOUTH  9TH - 11TH JUNE 2012
     Route: 048

REACTIONS (4)
  - SELF-INJURIOUS IDEATION [None]
  - INSOMNIA [None]
  - PAIN IN EXTREMITY [None]
  - ABNORMAL BEHAVIOUR [None]
